FAERS Safety Report 8592826-8 (Version None)
Quarter: 2012Q3

REPORT INFORMATION
  Report Type: 
  Country: None (occurrence: None)
  Receive Date: 20120814
  Receipt Date: 20120801
  Transmission Date: 20120928
  Serious: Yes (Other)
  Sender: FDA-Public Use
  Company Number: AU-ROCHE-1100536

PATIENT
  Age: 43 Year
  Weight: 67 kg

DRUGS (10)
  1. XELODA [Suspect]
     Dates: end: 20120701
  2. LETROZOLE [Concomitant]
     Indication: BREAST CANCER METASTATIC
  3. TAXOL [Concomitant]
     Indication: BREAST CANCER METASTATIC
  4. VINORELBINE [Concomitant]
     Indication: BREAST CANCER METASTATIC
  5. XELODA [Suspect]
     Indication: BREAST CANCER METASTATIC
     Dates: end: 20120301
  6. DOCETAXEL [Concomitant]
     Indication: BREAST CANCER METASTATIC
  7. CARBOPLATIN [Concomitant]
  8. LAPATINIB [Concomitant]
     Indication: BREAST CANCER METASTATIC
  9. HERCEPTIN [Suspect]
     Indication: BREAST CANCER METASTATIC
  10. GOSERELIN [Concomitant]
     Indication: BREAST CANCER METASTATIC

REACTIONS (1)
  - DISEASE PROGRESSION [None]
